FAERS Safety Report 25442513 (Version 2)
Quarter: 2025Q2

REPORT INFORMATION
  Report Type: Spontaneous
  Country: US (occurrence: US)
  Receive Date: 20250617
  Receipt Date: 20250625
  Transmission Date: 20250717
  Serious: Yes (Hospitalization, Other)
  Sender: VIIV
  Company Number: US-VIIV HEALTHCARE-US2025073341

PATIENT
  Age: 48 Year
  Sex: Male

DRUGS (4)
  1. CABENUVA [Suspect]
     Active Substance: CABOTEGRAVIR\RILPIVIRINE
     Indication: HIV infection
     Dosage: UNK, MO 400MG/600MG
  2. CABENUVA [Suspect]
     Active Substance: CABOTEGRAVIR\RILPIVIRINE
     Dosage: UNK, Q2M 600MG/3ML
  3. CABENUVA [Suspect]
     Active Substance: CABOTEGRAVIR\RILPIVIRINE
  4. TRAMADOL [Suspect]
     Active Substance: TRAMADOL
     Indication: Pain

REACTIONS (3)
  - Localised infection [Recovered/Resolved]
  - Rectal cancer [Unknown]
  - Feeling drunk [Unknown]

NARRATIVE: CASE EVENT DATE: 20250502
